FAERS Safety Report 6010392-8 (Version None)
Quarter: 2008Q4

REPORT INFORMATION
  Report Type: 
  Country: None (occurrence: None)
  Receive Date: 20081218
  Receipt Date: 20080122
  Transmission Date: 20090506
  Serious: No
  Sender: FDA-Public Use
  Company Number: US-AMGEN-KDL256793

PATIENT
  Sex: Male

DRUGS (2)
  1. ENBREL [Suspect]
     Indication: PSORIATIC ARTHROPATHY
     Route: 058
     Dates: start: 20070921
  2. ENBREL [Suspect]
     Indication: PSORIASIS

REACTIONS (5)
  - BLOOD CHOLESTEROL INCREASED [None]
  - BLOOD GLUCOSE ABNORMAL [None]
  - DIABETES MELLITUS [None]
  - DRUG EFFECT DECREASED [None]
  - VISION BLURRED [None]
